FAERS Safety Report 5766667-0 (Version None)
Quarter: 2008Q2

REPORT INFORMATION
  Report Type: 
  Country: None (occurrence: None)
  Receive Date: 20080610
  Receipt Date: 20080610
  Transmission Date: 20081010
  Serious: Yes (Other)
  Sender: FDA-Public Use
  Company Number: None

PATIENT

DRUGS (1)
  1. DEPO-PROVERA [Suspect]
     Dosage: 150 MG EVERG 3 MONTHS IM
     Route: 030

REACTIONS (3)
  - DRUG EXPOSURE DURING PREGNANCY [None]
  - NAUSEA [None]
  - PREGNANCY [None]
